FAERS Safety Report 5088912-X (Version None)
Quarter: 2006Q3

REPORT INFORMATION
  Report Type: 
  Country: None (occurrence: None)
  Receive Date: 20060824
  Receipt Date: 20060824
  Transmission Date: 20061208
  Serious: Yes (Hospitalization)
  Sender: FDA-Public Use
  Company Number: None

PATIENT
  Sex: Male
  Weight: 95.709 kg

DRUGS (25)
  1. DOXIL [Suspect]
     Indication: PROSTATE CANCER
     Dosage: 60 MG DAYS 1 Q 28 DAYS IV DRIP
     Route: 041
     Dates: start: 20060727, end: 20060727
  2. TAXOTERE [Suspect]
     Indication: PROSTATE CANCER
     Dosage: 60 MG DAYS 1,8,15 Q 28 D IV DRIP
     Route: 041
     Dates: start: 20060727, end: 20060810
  3. MAXOXIDE [Concomitant]
  4. LOPERAMIDE [Concomitant]
  5. TRAZODONE HCL [Concomitant]
  6. PAXIL [Concomitant]
  7. GLUCOTROL XL [Concomitant]
  8. TOPROL-XL [Concomitant]
  9. PRILOSEC [Concomitant]
  10. COUMADIN [Concomitant]
  11. CRESTOR [Concomitant]
  12. LEVOXYL [Concomitant]
  13. LASIX [Concomitant]
  14. PATASSIUM KCL [Concomitant]
  15. ASPIRIN [Concomitant]
  16. LISINOPRIL [Concomitant]
  17. MEGESTROL AC [Concomitant]
  18. VITAMIN B COMPLEX CAP [Concomitant]
  19. ASCORBIC ACID [Concomitant]
  20. CITRACAL [Concomitant]
  21. LOVENOX [Concomitant]
  22. CIPRO [Concomitant]
  23. MS CONTN [Concomitant]
  24. HYDROCODONE BITARTRATE [Concomitant]
  25. PHENERGAN HCL [Concomitant]

REACTIONS (1)
  - CATHETER SITE HAEMORRHAGE [None]
